FAERS Safety Report 6505039-8 (Version None)
Quarter: 2009Q4

REPORT INFORMATION
  Report Type: 
  Country: None (occurrence: None)
  Receive Date: 20091216
  Receipt Date: 20091204
  Transmission Date: 20100525
  Serious: Yes (Death)
  Sender: FDA-Public Use
  Company Number: 008121

PATIENT
  Age: 58 Year
  Sex: Female

DRUGS (8)
  1. SAMSCA [Suspect]
     Indication: HYPONATRAEMIA
     Dosage: 15 MG, QD; ORAL
     Route: 048
     Dates: start: 20091114, end: 20091116
  2. VORICONAZOLE [Concomitant]
  3. CACICHEW-D3 (CALCIUM CARBONATE, COLECALCIFEROL) [Concomitant]
  4. ACETAMINOPHEN [Concomitant]
  5. OMEPRAZOLE [Concomitant]
  6. SALBUTAMOL (SALBUTAMOL) [Concomitant]
  7. DEMECLOCYCLINE HCL [Concomitant]
  8. MORPHINE SULFATE INJ [Concomitant]

REACTIONS (3)
  - LUNG NEOPLASM MALIGNANT [None]
  - MALIGNANT NEOPLASM PROGRESSION [None]
  - RESPIRATORY FAILURE [None]
